FAERS Safety Report 25541322 (Version 1)
Quarter: 2025Q3

REPORT INFORMATION
  Report Type: Spontaneous
  Country: US (occurrence: US)
  Receive Date: 20250711
  Receipt Date: 20250711
  Transmission Date: 20251021
  Serious: No
  Sender: SANOFI AVENTIS
  Company Number: US-SA-2025SA193546

PATIENT
  Age: 51 Year
  Sex: Female

DRUGS (22)
  1. AUBAGIO [Suspect]
     Active Substance: TERIFLUNOMIDE
  2. VITAMIN C [Concomitant]
     Active Substance: ASCORBIC ACID
  3. LIPITOR [Concomitant]
     Active Substance: ATORVASTATIN CALCIUM
  4. VITAMIN D3 [Concomitant]
     Active Substance: CHOLECALCIFEROL
  5. COENZYME Q10 [Concomitant]
     Active Substance: DIETARY SUPPLEMENT\UBIDECARENONE
  6. UBIQUINOL [Concomitant]
     Active Substance: UBIQUINOL
     Route: 048
  7. VITAMIN B12 [Concomitant]
     Active Substance: CYANOCOBALAMIN
  8. CYMBALTA [Concomitant]
     Active Substance: DULOXETINE HYDROCHLORIDE
  9. ESTRACE [Concomitant]
     Active Substance: ESTRADIOL
  10. FOLVITE [Concomitant]
     Active Substance: FOLIC ACID
  11. MOBIC [Concomitant]
     Active Substance: MELOXICAM
  12. TOPROL XL [Concomitant]
     Active Substance: METOPROLOL SUCCINATE
  13. FISH OIL [Concomitant]
     Active Substance: FISH OIL
  14. BACTRIM DS [Concomitant]
     Active Substance: SULFAMETHOXAZOLE\TRIMETHOPRIM
  15. NP THYROID [Concomitant]
     Active Substance: LEVOTHYROXINE\LIOTHYRONINE
  16. CELEXA [Concomitant]
     Active Substance: CITALOPRAM HYDROBROMIDE
  17. LEXAPRO [Concomitant]
     Active Substance: ESCITALOPRAM OXALATE
  18. NEURONTIN [Concomitant]
     Active Substance: GABAPENTIN
  19. LINZESS [Concomitant]
     Active Substance: LINACLOTIDE
  20. GLUCOPHAGE XR [Concomitant]
     Active Substance: METFORMIN HYDROCHLORIDE
  21. ADIPEX-P [Concomitant]
     Active Substance: PHENTERMINE HYDROCHLORIDE
  22. PROMETRIUM [Concomitant]
     Active Substance: PROGESTERONE

REACTIONS (1)
  - Central nervous system lesion [Unknown]

NARRATIVE: CASE EVENT DATE: 20201001
